FAERS Safety Report 8207685-2 (Version None)
Quarter: 2012Q1

REPORT INFORMATION
  Report Type: 
  Country: None (occurrence: None)
  Receive Date: 20120314
  Receipt Date: 20120312
  Transmission Date: 20120608
  Serious: Yes (Other)
  Sender: FDA-Public Use
  Company Number: US-PFIZER INC-2012065703

PATIENT
  Sex: Female
  Weight: 70.295 kg

DRUGS (2)
  1. LITHIUM [Concomitant]
     Indication: BIPOLAR DISORDER
     Dosage: 600 MG, 2X/DAY
     Route: 048
  2. LYRICA [Suspect]
     Indication: FIBROMYALGIA
     Dosage: 150 MG, 3X/DAY

REACTIONS (2)
  - CEREBROVASCULAR ACCIDENT [None]
  - OCULAR VASCULAR DISORDER [None]
